FAERS Safety Report 10658510 (Version 1)
Quarter: 2014Q4

REPORT INFORMATION
  Report Type: Spontaneous
  Country: US (occurrence: US)
  Receive Date: 20141217
  Receipt Date: 20141217
  Transmission Date: 20150529
  Serious: No
  Sender: FDA-Public Use
  Company Number: US-GLAXOSMITHKLINE-A1068483A

PATIENT

DRUGS (5)
  1. VITAMINS [Concomitant]
     Active Substance: VITAMINS
  2. MARINOL [Concomitant]
     Active Substance: DRONABINOL
  3. VOTRIENT [Suspect]
     Active Substance: PAZOPANIB HYDROCHLORIDE
     Indication: SOFT TISSUE SARCOMA
     Dosage: 200 MG TABLETS, 800 MG DAILY
     Route: 048
     Dates: start: 20140115
  4. ZOFRAN [Concomitant]
     Active Substance: ONDANSETRON HYDROCHLORIDE
  5. PANTOPRAZOLE [Concomitant]
     Active Substance: PANTOPRAZOLE SODIUM

REACTIONS (2)
  - Vomiting [Unknown]
  - Mucosal inflammation [Unknown]
